FAERS Safety Report 10568110 (Version 1)
Quarter: 2014Q4

REPORT INFORMATION
  Report Type: Spontaneous
  Country: JP (occurrence: None)
  Receive Date: 20141104
  Receipt Date: 20141104
  Transmission Date: 20150529
  Serious: Yes (Hospitalization)
  Sender: FDA-Public Use
  Company Number: JP-DEXPHARM-20140756

PATIENT
  Age: 33 Year
  Sex: Male

DRUGS (6)
  1. PREGABALIN. [Suspect]
     Active Substance: PREGABALIN
     Indication: NEURALGIA
     Dosage: DAY
  2. OLOPATADINE [Concomitant]
     Active Substance: OLOPATADINE
  3. QUAZEPAM. [Concomitant]
     Active Substance: QUAZEPAM
  4. OMEPRAZOLE. [Suspect]
     Active Substance: OMEPRAZOLE
  5. DICLOFENAC [Concomitant]
     Active Substance: DICLOFENAC
  6. CEFTRIAXONE. [Suspect]
     Active Substance: CEFTRIAXONE
     Indication: INFECTION PROPHYLAXIS

REACTIONS (2)
  - Clostridium difficile infection [None]
  - Agranulocytosis [None]
